FAERS Safety Report 15713902 (Version 2)
Quarter: 2018Q4

REPORT INFORMATION
  Report Type: Spontaneous
  Country: US (occurrence: US)
  Receive Date: 20181212
  Receipt Date: 20181226
  Transmission Date: 20190205
  Serious: No
  Sender: FDA-Public Use
  Company Number: US-VERTEX PHARMACEUTICALS-2018-009406

PATIENT
  Sex: Male

DRUGS (4)
  1. OMEGA 3 FISH OIL PLUS VITAMIN D [Concomitant]
     Dosage: 1 DOSAGE FORM, QD
     Route: 048
  2. COLLAGEN [Concomitant]
     Active Substance: COLLAGEN
     Dosage: 1 DOSAGE FORM, QD
     Route: 048
  3. SYMDEKO [Suspect]
     Active Substance: IVACAFTOR\TEZACAFTOR
     Indication: CYSTIC FIBROSIS
     Dosage: 100 MG TEZACAFTOR/ 150 MG IVACAFTOR AM; 150 MG IVACAFTOR PM
     Route: 048
     Dates: start: 2018, end: 2018
  4. CULTURELLE [Concomitant]
     Active Substance: LACTOBACILLUS RHAMNOSUS
     Dosage: 200 MG, QD
     Route: 048

REACTIONS (5)
  - Abdominal pain upper [Unknown]
  - Decreased appetite [Unknown]
  - Weight decreased [Unknown]
  - Night sweats [Unknown]
  - Nausea [Unknown]

NARRATIVE: CASE EVENT DATE: 2018
